FAERS Safety Report 18740291 (Version 3)
Quarter: 2021Q1

REPORT INFORMATION
  Report Type: Spontaneous
  Country: AU (occurrence: AU)
  Receive Date: 20210114
  Receipt Date: 20210325
  Transmission Date: 20210419
  Serious: Yes (Life-Threatening)
  Sender: FDA-Public Use
  Company Number: AU-PFIZER INC-2020456015

PATIENT
  Age: 75 Year
  Sex: Male

DRUGS (13)
  1. NOVORAPID [Concomitant]
     Active Substance: INSULIN ASPART
     Dosage: 5?15 UNITS, 3X/DAY PRE?MEALS
  2. CRESTOR [Concomitant]
     Active Substance: ROSUVASTATIN CALCIUM
     Dosage: 20MG, DAILY
  3. ZOTON [Concomitant]
     Active Substance: LANSOPRAZOLE
     Dosage: 30 MG, 2X/DAY
  4. DAPAGLIFLOZIN/METFORMIN [Concomitant]
     Active Substance: DAPAGLIFLOZIN PROPANEDIOL\METFORMIN HYDROCHLORIDE
  5. NITROSTAT [Suspect]
     Active Substance: NITROGLYCERIN
     Dosage: UNK
     Route: 048
  6. NITROSTAT [Suspect]
     Active Substance: NITROGLYCERIN
     Dosage: UNK
     Route: 048
  7. CRESTOR [Concomitant]
     Active Substance: ROSUVASTATIN CALCIUM
     Dosage: 40 MG, 1X/DAY
  8. PEXSIG [Concomitant]
     Dosage: 100 MG, MORNING
  9. VASOCARDOL [Concomitant]
     Dosage: 180 MG, MORNING
  10. OPTISULIN [INSULIN GLARGINE] [Concomitant]
     Active Substance: INSULIN GLARGINE
     Dosage: 40 IU AT NIGHT
  11. IMDUR [Concomitant]
     Active Substance: ISOSORBIDE MONONITRATE
     Dosage: 120 MG, MORNING
  12. ISORDIL [Concomitant]
     Active Substance: ISOSORBIDE DINITRATE
     Dosage: 5 MG, WHEN REQUIRED
     Route: 060
  13. PLIDOGREL [Concomitant]
     Dosage: 75 MG, 1X/DAY

REACTIONS (5)
  - Product physical issue [Unknown]
  - Wrong technique in product usage process [Unknown]
  - Drug ineffective [Not Recovered/Not Resolved]
  - Burning sensation [Unknown]
  - Poor quality product administered [Unknown]

NARRATIVE: CASE EVENT DATE: 20201101
